FAERS Safety Report 9768948 (Version 1)
Quarter: 2013Q4

REPORT INFORMATION
  Report Type: Spontaneous
  Country: JP (occurrence: None)
  Receive Date: 20131216
  Receipt Date: 20131216
  Transmission Date: 20140711
  Serious: Yes (Hospitalization)
  Sender: FDA-Public Use
  Company Number: 152264

PATIENT
  Age: 68 Year
  Sex: Female

DRUGS (4)
  1. CARBOPLATIN [Suspect]
     Indication: CHEMOTHERAPY
  2. CARBOPLATIN [Suspect]
     Indication: RADIOTHERAPY
  3. ETOPOSIDE [Suspect]
     Indication: CHEMOTHERAPY
  4. ETOPOSIDE [Suspect]
     Indication: RADIOTHERAPY

REACTIONS (4)
  - Paraneoplastic neurological syndrome [None]
  - Respiratory failure [None]
  - Loss of consciousness [None]
  - Cerebral infarction [None]
